FAERS Safety Report 23487598 (Version 10)
Quarter: 2025Q1

REPORT INFORMATION
  Report Type: Report from Study
  Country: US (occurrence: US)
  Receive Date: 20240206
  Receipt Date: 20250205
  Transmission Date: 20250409
  Serious: Yes (Hospitalization, Other)
  Sender: EXELIXIS
  Company Number: US-EXELIXIS-CABO-24073458

PATIENT
  Age: 59 Year
  Sex: Male

DRUGS (16)
  1. CABOMETYX [Suspect]
     Active Substance: CABOZANTINIB S-MALATE
     Indication: Metastatic renal cell carcinoma
     Dosage: 60 MG, QD
     Route: 048
     Dates: start: 202310
  2. CABOMETYX [Suspect]
     Active Substance: CABOZANTINIB S-MALATE
     Dosage: 40 MG, QD
     Route: 048
     Dates: start: 20240119
  3. CABOMETYX [Suspect]
     Active Substance: CABOZANTINIB S-MALATE
     Route: 048
  4. ALBUTEROL SULFATE [Concomitant]
     Active Substance: ALBUTEROL SULFATE
  5. ALLOPURINOL [Concomitant]
     Active Substance: ALLOPURINOL
  6. CITALOPRAM HYDROBROMIDE [Concomitant]
     Active Substance: CITALOPRAM HYDROBROMIDE
  7. DOXYCYCLINE [Concomitant]
     Active Substance: DOXYCYCLINE
  8. FLUDROCORTISONE [Concomitant]
     Active Substance: FLUDROCORTISONE
  9. HYDROCORTISONE [Concomitant]
     Active Substance: HYDROCORTISONE
  10. LISINOPRIL [Concomitant]
     Active Substance: LISINOPRIL
  11. LOVASTATIN [Concomitant]
     Active Substance: LOVASTATIN
  12. ONDANSETRON [Concomitant]
     Active Substance: ONDANSETRON
  13. PREDNISONE [Concomitant]
     Active Substance: PREDNISONE
  14. ACIPHEX [Concomitant]
     Active Substance: RABEPRAZOLE SODIUM
  15. CLONIDINE HYDROCHLORIDE [Concomitant]
     Active Substance: CLONIDINE HYDROCHLORIDE
  16. TRAMADOL HCL [Concomitant]
     Active Substance: TRAMADOL HYDROCHLORIDE

REACTIONS (46)
  - Electrolyte imbalance [Recovering/Resolving]
  - Blood pressure increased [Recovering/Resolving]
  - Diarrhoea [Not Recovered/Not Resolved]
  - Nausea [Unknown]
  - Headache [Not Recovered/Not Resolved]
  - Confusional state [Recovering/Resolving]
  - Adrenal insufficiency [Unknown]
  - Colostomy [Unknown]
  - Loss of consciousness [Unknown]
  - Surgery [Unknown]
  - Shoulder operation [Unknown]
  - Hip surgery [Unknown]
  - Shunt malfunction [Recovered/Resolved]
  - Device occlusion [Unknown]
  - Medical device site infection [Unknown]
  - Thinking abnormal [Not Recovered/Not Resolved]
  - Joint swelling [Unknown]
  - Memory impairment [Not Recovered/Not Resolved]
  - Hair colour changes [Recovering/Resolving]
  - Irritability [Recovering/Resolving]
  - Paraesthesia [Recovering/Resolving]
  - Vision blurred [Recovering/Resolving]
  - Peripheral swelling [Not Recovered/Not Resolved]
  - Gait disturbance [Not Recovered/Not Resolved]
  - Periorbital disorder [Not Recovered/Not Resolved]
  - Feeling abnormal [Not Recovered/Not Resolved]
  - Malaise [Not Recovered/Not Resolved]
  - Taste disorder [Recovering/Resolving]
  - Vomiting [Unknown]
  - Fatigue [Recovering/Resolving]
  - Weight decreased [Not Recovered/Not Resolved]
  - Stomatitis [Not Recovered/Not Resolved]
  - Abdominal pain [Not Recovered/Not Resolved]
  - Protein urine present [Unknown]
  - Decreased appetite [Not Recovered/Not Resolved]
  - Cough [Recovering/Resolving]
  - Skin ulcer [Unknown]
  - Rash [Recovering/Resolving]
  - Neck pain [Unknown]
  - COVID-19 [Not Recovered/Not Resolved]
  - Pleural effusion [Unknown]
  - Arthropathy [Unknown]
  - Procedural pain [Not Recovered/Not Resolved]
  - Pain [Unknown]
  - Product prescribing issue [Unknown]
  - Inappropriate schedule of product administration [Unknown]

NARRATIVE: CASE EVENT DATE: 20240901
